FAERS Safety Report 7116004-4 (Version None)
Quarter: 2010Q4

REPORT INFORMATION
  Report Type: 
  Country: None (occurrence: None)
  Receive Date: 20101122
  Receipt Date: 20101115
  Transmission Date: 20110411
  Serious: Yes (Death, Other)
  Sender: FDA-Public Use
  Company Number: US-ROCHE-630167

PATIENT

DRUGS (4)
  1. TICLOPIDINE HCL [Suspect]
     Route: 065
  2. HEPARIN SODIUM [Suspect]
     Indication: PROCOAGULANT THERAPY
     Dosage: DOSE: 60 IU/KG WITH SUBSEQUENT BOLUS DOSES
     Route: 040
  3. ASPIRIN [Concomitant]
     Route: 048
  4. CLOPIDOGREL [Concomitant]
     Dosage: EITHER 300 OR 600 MG BEFORE CATHETER INSERTION FOLLOWED BY 75 MG/DAILY FOR ATLEAST 6 MON
     Route: 048

REACTIONS (8)
  - CARDIAC DISORDER [None]
  - CEREBROVASCULAR ACCIDENT [None]
  - DEATH [None]
  - HAEMORRHAGE [None]
  - ISCHAEMIA [None]
  - MYOCARDIAL INFARCTION [None]
  - THROMBOCYTOPENIA [None]
  - THROMBOSIS IN DEVICE [None]
